FAERS Safety Report 20945389 (Version 2)
Quarter: 2022Q2

REPORT INFORMATION
  Report Type: Spontaneous
  Country: US (occurrence: US)
  Receive Date: 20220610
  Receipt Date: 20220620
  Transmission Date: 20220721
  Serious: No
  Sender: FDA-Public Use
  Company Number: US-AIMMUNE THERAPEUTICS, INC.-2022AIMT00446

PATIENT

DRUGS (2)
  1. PALFORZIA [Suspect]
     Active Substance: PEANUT
     Indication: Food allergy
     Dosage: 120 MG, 1X/DAY
     Route: 048
     Dates: start: 20220518
  2. PALFORZIA [Suspect]
     Active Substance: PEANUT
     Dosage: 120 MG, 1X/DAY, LAST DOSE PRIOR TO EVENT EXPERINCED AT 120 MG
     Route: 048
     Dates: start: 20220606, end: 20220606

REACTIONS (1)
  - Throat irritation [Unknown]
